FAERS Safety Report 4927913-6 (Version None)
Quarter: 2006Q1

REPORT INFORMATION
  Report Type: 
  Country: None (occurrence: None)
  Receive Date: 20060222
  Receipt Date: 20060202
  Transmission Date: 20060701
  Serious: Yes (Hospitalization, Disabling)
  Sender: FDA-Public Use
  Company Number: 384554

PATIENT
  Age: 20 Year
  Sex: Female
  Weight: 65.8 kg

DRUGS (3)
  1. ACCUTANE [Suspect]
     Indication: ACNE
     Dosage: ORAL
     Route: 048
     Dates: start: 19991206, end: 20000515
  2. MINOCYCLINE HCL [Concomitant]
  3. ORTHO CYCLEN (ETHINYL ESTRADIOL/NORGESTIMATE) [Concomitant]

REACTIONS (28)
  - ANAEMIA [None]
  - ANXIETY [None]
  - BACK PAIN [None]
  - COLITIS ULCERATIVE [None]
  - CONSTIPATION [None]
  - CROHN'S DISEASE [None]
  - DEHYDRATION [None]
  - DEPRESSION [None]
  - DIARRHOEA [None]
  - ECZEMA [None]
  - FAECAL INCONTINENCE [None]
  - FATIGUE [None]
  - GASTROINTESTINAL DISORDER [None]
  - HAEMORRHAGE [None]
  - INCONTINENCE [None]
  - INFLAMMATORY BOWEL DISEASE [None]
  - INJURY [None]
  - INTESTINAL HAEMORRHAGE [None]
  - IRRITABLE BOWEL SYNDROME [None]
  - MEGACOLON [None]
  - MULTI-ORGAN DISORDER [None]
  - NAUSEA [None]
  - OVERWEIGHT [None]
  - PYREXIA [None]
  - TENDERNESS [None]
  - VOMITING [None]
  - WEIGHT DECREASED [None]
  - WITHDRAWAL BLEED [None]
